FAERS Safety Report 8417370-X (Version None)
Quarter: 2012Q2

REPORT INFORMATION
  Report Type: 
  Country: None (occurrence: None)
  Receive Date: 20120606
  Receipt Date: 20120515
  Transmission Date: 20120825
  Serious: Yes (Other)
  Sender: FDA-Public Use
  Company Number: US-BAXTER-2012BAX006143

PATIENT
  Age: 80 Year
  Sex: Male

DRUGS (10)
  1. ENOXAPARIN [Concomitant]
  2. ASPIRIN [Concomitant]
  3. CALCITRIOL [Concomitant]
  4. EXTRANEAL [Suspect]
     Indication: PERITONEAL DIALYSIS
     Route: 033
  5. INSULIN LISPRO [Concomitant]
  6. SENNA-MINT WAF [Concomitant]
  7. SEVELAMER CARBONATE [Concomitant]
  8. AMOXICILLIN/CLAVULONATE [Concomitant]
  9. PRAVASTATIN [Concomitant]
  10. LEVOTHYROXINE SODIUM [Concomitant]

REACTIONS (3)
  - DEVICE INTERACTION [None]
  - HYPOGLYCAEMIA [None]
  - HYPOTENSION [None]
